FAERS Safety Report 23349949 (Version 1)
Quarter: 2023Q4

REPORT INFORMATION
  Report Type: Spontaneous
  Country: HR (occurrence: HR)
  Receive Date: 20231229
  Receipt Date: 20231229
  Transmission Date: 20240109
  Serious: Yes (Other)
  Sender: FDA-Public Use
  Company Number: None

PATIENT
  Age: 1 Year
  Sex: Male
  Weight: 10 kg

DRUGS (3)
  1. IBUPROFEN [Suspect]
     Active Substance: IBUPROFEN
     Indication: Product used for unknown indication
     Dosage: 90 MG, QD (IN THE LAST 24 HOURS, THE PEDIATRICIAN GAVE AN ADDITIONAL 90 MG)
     Route: 065
     Dates: start: 20230621, end: 20230622
  2. IBUPROFEN [Suspect]
     Active Substance: IBUPROFEN
     Indication: Product used for unknown indication
     Dosage: 125 MG, QID (IN THE LAST 24 HOURS, THE PARENTS GAVE 4 PILLS X 125 MG)
     Route: 065
     Dates: start: 20230621, end: 20230622
  3. ACETAMINOPHEN [Suspect]
     Active Substance: ACETAMINOPHEN
     Indication: Product used for unknown indication
     Dosage: 300 MG, QD (RECEIVED 300 MG IN THE LAST 24 HOURS )
     Route: 065
     Dates: start: 20230621, end: 20230622

REACTIONS (2)
  - Hepatic enzyme increased [Unknown]
  - Accidental overdose [Unknown]

NARRATIVE: CASE EVENT DATE: 20230621
